FAERS Safety Report 9461303 (Version 3)
Quarter: 2013Q3

REPORT INFORMATION
  Report Type: Spontaneous
  Country: US (occurrence: US)
  Receive Date: 20130816
  Receipt Date: 20130829
  Transmission Date: 20140515
  Serious: No
  Sender: FDA-Public Use
  Company Number: US-PFIZER INC-2013234708

PATIENT
  Age: 71 Year
  Sex: Male

DRUGS (4)
  1. VIAGRA [Suspect]
     Indication: ERECTILE DYSFUNCTION
     Dosage: 25 MG (TAKING ONE OF FOUR PIECES OF VIAGRA 25MG SPLIT FROM 100MG TABLET), AS NEEDED
     Route: 048
     Dates: end: 201307
  2. VIAGRA [Suspect]
     Dosage: 50 MG (TAKING TWO OF FOUR PIECES OF VIAGRA OF 25MG SPLIT FROM 100MG TABLET), AS NEEDED
     Route: 048
     Dates: start: 201307
  3. LEVOTHYROXINE [Concomitant]
     Indication: HYPOTHYROIDISM
     Dosage: UNK
  4. TRAZODONE [Concomitant]
     Dosage: UNK

REACTIONS (3)
  - Drug ineffective [Unknown]
  - Product taste abnormal [Unknown]
  - Product quality issue [Unknown]
